FAERS Safety Report 9056755 (Version 1)
Quarter: 2013Q1

REPORT INFORMATION
  Report Type: Spontaneous
  Country: US (occurrence: US)
  Receive Date: 20130201
  Receipt Date: 20130201
  Transmission Date: 20140127
  Serious: Yes (Hospitalization)
  Sender: FDA-Public Use
  Company Number: US-ELI_LILLY_AND_COMPANY-US201301007383

PATIENT
  Sex: Female

DRUGS (13)
  1. FORTEO [Suspect]
     Indication: OSTEOPOROSIS
     Dosage: 20 UG, QD
     Dates: start: 201207, end: 20121218
  2. HYDROCODONE [Concomitant]
     Dosage: UNK, PRN
  3. BACLOFEN [Concomitant]
     Dosage: 10 MG, UNK
  4. AMLODIPINE BESYLATE [Concomitant]
     Dosage: 5 MG, QD
  5. CYCLOBENZAPRINE [Concomitant]
     Dosage: 10 MG, QD
  6. CYMBALTA [Concomitant]
     Dosage: 60 MG, BID
  7. TRAZODONE [Concomitant]
     Dosage: 50 MG, UNK
  8. LORATADINE [Concomitant]
     Dosage: 10 MG, QD
  9. FOLIC ACID [Concomitant]
     Dosage: 1 MG, QD
  10. ROPINIROLE [Concomitant]
     Dosage: UNK UNK, QD
  11. PREDNISONE [Concomitant]
     Dosage: 10 MG, QOD
  12. THEOPHYLLINE [Concomitant]
     Dosage: 600 MG, QD
  13. HUMIRA [Concomitant]
     Dosage: UNK, OTHER

REACTIONS (5)
  - Bronchitis [Unknown]
  - Asthma [Unknown]
  - Pneumothorax [Unknown]
  - Dyspnoea [Unknown]
  - Oxygen saturation decreased [Unknown]
